FAERS Safety Report 9421361 (Version 1)
Quarter: 2013Q3

REPORT INFORMATION
  Report Type: Report from Study
  Country: US (occurrence: US)
  Receive Date: 20130725
  Receipt Date: 20130725
  Transmission Date: 20140515
  Serious: Yes (Other)
  Sender: FDA-Public Use
  Company Number: US-AMGEN-USACT2013047781

PATIENT
  Age: 69 Year
  Sex: Female
  Weight: 87 kg

DRUGS (13)
  1. BLINDED DARBEPOETIN ALFA [Suspect]
     Indication: ANAEMIA OF MALIGNANT DISEASE
     Dates: start: 20120103
  2. BLINDED PLACEBO [Suspect]
     Indication: ANAEMIA OF MALIGNANT DISEASE
     Dates: start: 20120103
  3. XGEVA [Suspect]
     Indication: METASTASES TO BONE
     Dosage: 120 MG, UNK
     Dates: start: 20110317, end: 20120103
  4. GLUCOPHAGE [Concomitant]
     Indication: HYPERGLYCAEMIA
     Dosage: 500 MG, UNK
     Dates: start: 19900701
  5. AMARYL [Concomitant]
     Indication: DIABETES MELLITUS
     Dosage: 4 MG, UNK
     Dates: start: 20010615
  6. PREMPRO [Concomitant]
     Indication: MENOPAUSE
     Dosage: 0.625 MG, UNK
     Dates: start: 19850615
  7. AMITRIPTYLINE [Concomitant]
     Indication: INSOMNIA
     Dosage: 25 MG, UNK
     Dates: start: 20070615
  8. MEVACOR [Concomitant]
     Indication: HYPERLIPIDAEMIA
     Dosage: 20 MG, UNK
     Dates: start: 20050615
  9. SYNTHROID [Concomitant]
     Indication: HYPOTHYROIDISM
     Dosage: 0.75 MG, UNK
     Dates: start: 19960615
  10. MOBIC [Concomitant]
     Indication: ARTHRITIS
     Dosage: 7.5 MG, UNK
     Dates: start: 19960615
  11. ASA [Concomitant]
     Indication: CARDIAC DISORDER
     Dosage: 81 MG, UNK
     Dates: start: 20050615
  12. PEMETREXED [Concomitant]
     Dosage: 945 MG, UNK
     Dates: start: 20111101, end: 20120125
  13. CARBOPLATIN [Concomitant]
     Dosage: 635 MG, UNK
     Dates: start: 20111101, end: 20120125

REACTIONS (1)
  - Osteonecrosis of jaw [Not Recovered/Not Resolved]
